FAERS Safety Report 21520024 (Version 1)
Quarter: 2022Q4

REPORT INFORMATION
  Report Type: Spontaneous
  Country: DK (occurrence: DK)
  Receive Date: 20221028
  Receipt Date: 20221028
  Transmission Date: 20230112
  Serious: Yes (Other)
  Sender: FDA-Public Use
  Company Number: None

PATIENT
  Age: 50 Year
  Sex: Male

DRUGS (3)
  1. FLUOROURACIL [Suspect]
     Active Substance: FLUOROURACIL
     Indication: Colorectal cancer
     Dosage: UNK (DOSAGE: UNKNOWN. ONLY 1 OR 2 ROUNDS OF TREATMENT GIVEN STRENGTH: UNKNOWN) (START DATE UNKNOWN B
     Route: 065
     Dates: start: 2019, end: 20190425
  2. OXALIPLATIN [Suspect]
     Active Substance: OXALIPLATIN
     Indication: Colorectal cancer
     Dosage: UNK (DOSAGE: UNKNOWN. ONLY 1 OR 2 ROUNDS OF TREATMENT GIVEN STRENGTH: 5MG/ML) (START DATE UNKNOWN BU
     Route: 065
     Dates: start: 2019, end: 20190425
  3. LEUCOVORIN [Suspect]
     Active Substance: LEUCOVORIN
     Indication: Colorectal cancer
     Dosage: UNK (DOSAGE: UNKNOWN. ONLY 1 OR 2 ROUNDS OF TREATMENT GIVEN STRENGTH: UNKNOWN) (START DATE UNKNOWN B
     Route: 065
     Dates: start: 2019, end: 20190425

REACTIONS (4)
  - Decreased vibratory sense [Unknown]
  - Sensory disturbance [Unknown]
  - Polyneuropathy [Unknown]
  - Paraesthesia [Unknown]

NARRATIVE: CASE EVENT DATE: 20190101
